FAERS Safety Report 22121579 (Version 1)
Quarter: 2023Q1

REPORT INFORMATION
  Report Type: Spontaneous
  Country: US (occurrence: None)
  Receive Date: 20230321
  Receipt Date: 20230321
  Transmission Date: 20230417
  Serious: No
  Sender: FDA-Public Use
  Company Number: None

PATIENT
  Age: 23 Year
  Sex: Female
  Weight: 47.25 kg

DRUGS (2)
  1. DEXTROAMPHET SACCHARAT, AMPHET ASPARTATE, DEXTROAMPHET SULFATE AND AMP [Suspect]
     Active Substance: AMPHETAMINE ASPARTATE\AMPHETAMINE SULFATE\DEXTROAMPHETAMINE SACCHARATE\DEXTROAMPHETAMINE SULFATE
     Indication: Attention deficit hyperactivity disorder
     Route: 048
     Dates: start: 20220719, end: 20230320
  2. NORETHINDRONE [Concomitant]
     Active Substance: NORETHINDRONE

REACTIONS (12)
  - Product substitution issue [None]
  - Palpitations [None]
  - Headache [None]
  - Dry mouth [None]
  - Hyperhidrosis [None]
  - Nausea [None]
  - Dehydration [None]
  - Fatigue [None]
  - Drug ineffective [None]
  - Blood caffeine increased [None]
  - Drug intolerance [None]
  - Therapy cessation [None]

NARRATIVE: CASE EVENT DATE: 20230320
